FAERS Safety Report 21694357 (Version 2)
Quarter: 2023Q1

REPORT INFORMATION
  Report Type: Report from Study
  Country: BR (occurrence: US)
  Receive Date: 20221207
  Receipt Date: 20230317
  Transmission Date: 20230417
  Serious: Yes (Hospitalization)
  Sender: FDA-Public Use
  Company Number: BR-BIOGEN-2022BI01154036

PATIENT
  Age: 2 Year
  Sex: Female
  Weight: 10.5 kg

DRUGS (11)
  1. SPINRAZA [Suspect]
     Active Substance: NUSINERSEN
     Indication: Spinal muscular atrophy
     Route: 050
     Dates: start: 20220818
  2. SPINRAZA [Suspect]
     Active Substance: NUSINERSEN
     Route: 050
  3. SPINRAZA [Suspect]
     Active Substance: NUSINERSEN
     Route: 050
  4. SPINRAZA [Suspect]
     Active Substance: NUSINERSEN
     Route: 050
     Dates: start: 20230126
  5. SERETIDE [Concomitant]
     Active Substance: FLUTICASONE PROPIONATE\SALMETEROL XINAFOATE
     Indication: Respiratory disorder
     Route: 050
     Dates: start: 20220118
  6. SERETIDE [Concomitant]
     Active Substance: FLUTICASONE PROPIONATE\SALMETEROL XINAFOATE
     Route: 050
     Dates: start: 20220118
  7. POLYETHYLENE GLYCOL [Concomitant]
     Active Substance: POLYETHYLENE GLYCOL
     Indication: Gastrointestinal disorder
     Route: 050
     Dates: start: 202203
  8. POLYETHYLENE GLYCOL [Concomitant]
     Active Substance: POLYETHYLENE GLYCOL
     Route: 050
     Dates: start: 202204
  9. ATROPINE [Concomitant]
     Active Substance: ATROPINE
     Indication: Aptyalism
     Dosage: 2 DROPS
     Route: 050
     Dates: start: 202111
  10. BUTYLSCOPOLAMINE BROMIDE [Concomitant]
     Active Substance: BUTYLSCOPOLAMINE BROMIDE
     Indication: Salivary hypersecretion
     Dosage: 2 DROPS
     Route: 050
     Dates: start: 20220803
  11. OMEGA 3 [Concomitant]
     Active Substance: CAPSAICIN
     Indication: Routine health maintenance
     Route: 050
     Dates: start: 202203

REACTIONS (3)
  - Pneumonia viral [Recovered/Resolved]
  - Pneumonia aspiration [Recovered/Resolved]
  - Pneumonia influenzal [Not Recovered/Not Resolved]

NARRATIVE: CASE EVENT DATE: 20220819
